FAERS Safety Report 18755943 (Version 6)
Quarter: 2021Q4

REPORT INFORMATION
  Report Type: Report from Study
  Country: US (occurrence: US)
  Receive Date: 20210119
  Receipt Date: 20211123
  Transmission Date: 20220303
  Serious: Yes (Hospitalization)
  Sender: FDA-Public Use
  Company Number: NVSC2021US010586

PATIENT
  Age: 80 Year
  Sex: Male

DRUGS (1)
  1. ENTRESTO [Suspect]
     Active Substance: SACUBITRIL\VALSARTAN
     Indication: Product used for unknown indication
     Dosage: 1 DF, BID (49/51 MG)
     Route: 048

REACTIONS (6)
  - Dyspnoea [Recovered/Resolved]
  - Ill-defined disorder [Not Recovered/Not Resolved]
  - Initial insomnia [Not Recovered/Not Resolved]
  - Back pain [Unknown]
  - Dizziness postural [Recovering/Resolving]
  - Blood potassium increased [Unknown]

NARRATIVE: CASE EVENT DATE: 20201225
